FAERS Safety Report 5914742-X (Version None)
Quarter: 2008Q4

REPORT INFORMATION
  Report Type: 
  Country: None (occurrence: None)
  Receive Date: 20081010
  Receipt Date: 20081003
  Transmission Date: 20090506
  Serious: Yes (Hospitalization)
  Sender: FDA-Public Use
  Company Number: US-NOVOPROD-280054

PATIENT
  Sex: Female
  Weight: 58.957 kg

DRUGS (8)
  1. LEVEMIR [Suspect]
     Indication: INSULIN-REQUIRING TYPE 2 DIABETES MELLITUS
     Dosage: 10 IU, QD
     Route: 058
     Dates: start: 20020101, end: 20081001
  2. LEVEMIR [Suspect]
     Dosage: 11 IU, QD
     Route: 058
     Dates: start: 20081002
  3. HUMALOG [Concomitant]
     Dosage: SLIDING SCALE
     Route: 058
  4. GABAPENTIN [Concomitant]
     Indication: DRUG USE FOR UNKNOWN INDICATION
     Dosage: 300 MG, TID
     Route: 048
  5. LISINOPRIL [Concomitant]
     Indication: DRUG USE FOR UNKNOWN INDICATION
     Dosage: 40 MG, QD
     Route: 048
  6. ASPIRIN [Concomitant]
     Indication: PROPHYLAXIS
     Dosage: 81 MG, QD
     Route: 048
  7. LASIX [Concomitant]
     Indication: FLUID RETENTION
     Dosage: 20 MG, QD
     Route: 048
     Dates: start: 20080201
  8. LASIX [Concomitant]
     Dosage: 20 MG, BID
     Route: 048
     Dates: start: 20080901

REACTIONS (4)
  - CARDIAC FAILURE CONGESTIVE [None]
  - HYPERGLYCAEMIA [None]
  - PNEUMONIA [None]
  - UNRESPONSIVE TO STIMULI [None]
